FAERS Safety Report 17674679 (Version 10)
Quarter: 2021Q1

REPORT INFORMATION
  Report Type: Other
  Country: BR (occurrence: BR)
  Receive Date: 20200416
  Receipt Date: 20210331
  Transmission Date: 20210419
  Serious: Yes (Life-Threatening)
  Sender: FDA-Public Use
  Company Number: BR-ROCHE-2582830

PATIENT
  Age: 61 Year
  Sex: Female

DRUGS (17)
  1. XOLAIR [Suspect]
     Active Substance: OMALIZUMAB
     Route: 058
     Dates: start: 20200325
  2. XOLAIR [Suspect]
     Active Substance: OMALIZUMAB
     Route: 058
     Dates: start: 20200327
  3. XOLAIR [Suspect]
     Active Substance: OMALIZUMAB
     Route: 058
     Dates: start: 20190315
  4. XOLAIR [Suspect]
     Active Substance: OMALIZUMAB
     Route: 058
     Dates: start: 2020
  5. CALCIUM [Concomitant]
     Active Substance: CALCIUM
  6. XOLAIR [Suspect]
     Active Substance: OMALIZUMAB
     Indication: CHRONIC SPONTANEOUS URTICARIA
     Route: 058
     Dates: start: 20190131
  7. XOLAIR [Suspect]
     Active Substance: OMALIZUMAB
     Route: 058
     Dates: start: 20190315
  8. ERENUMAB [Suspect]
     Active Substance: ERENUMAB
     Indication: PRODUCT USED FOR UNKNOWN INDICATION
     Route: 065
  9. XOLAIR [Suspect]
     Active Substance: OMALIZUMAB
     Route: 058
     Dates: start: 201902, end: 201904
  10. CETIRIZINE [Suspect]
     Active Substance: CETIRIZINE HYDROCHLORIDE
     Indication: PRODUCT USED FOR UNKNOWN INDICATION
     Route: 065
  11. LOSARTAN. [Concomitant]
     Active Substance: LOSARTAN
     Indication: PRODUCT USED FOR UNKNOWN INDICATION
     Dosage: 50 MG, UNK
     Route: 065
  12. XOLAIR [Suspect]
     Active Substance: OMALIZUMAB
     Route: 058
     Dates: start: 2019
  13. XOLAIR [Suspect]
     Active Substance: OMALIZUMAB
     Route: 058
     Dates: start: 20200327
  14. XOLAIR [Suspect]
     Active Substance: OMALIZUMAB
     Route: 058
     Dates: start: 20190215
  15. XOLAIR [Suspect]
     Active Substance: OMALIZUMAB
     Route: 058
     Dates: start: 201904
  16. XOLAIR [Suspect]
     Active Substance: OMALIZUMAB
     Route: 058
     Dates: start: 201909
  17. XOLAIR [Suspect]
     Active Substance: OMALIZUMAB
     Route: 058
     Dates: start: 202003

REACTIONS (39)
  - Tongue pruritus [Recovered/Resolved]
  - Malaise [Recovered/Resolved]
  - Bone density decreased [Unknown]
  - Vitamin D decreased [Unknown]
  - Swelling face [Recovering/Resolving]
  - Rash [Not Recovered/Not Resolved]
  - Pain [Not Recovered/Not Resolved]
  - Somnolence [Unknown]
  - Drug ineffective [Unknown]
  - Pruritus [Recovered/Resolved]
  - Mood swings [Not Recovered/Not Resolved]
  - Feeling abnormal [Recovered/Resolved]
  - Lip swelling [Recovered/Resolved]
  - Therapeutic product effect decreased [Unknown]
  - Swelling [Not Recovered/Not Resolved]
  - Insomnia [Not Recovered/Not Resolved]
  - Ill-defined disorder [Recovered/Resolved]
  - Anxiety [Recovered/Resolved]
  - Adverse food reaction [Recovering/Resolving]
  - Limb discomfort [Not Recovered/Not Resolved]
  - Pruritus [Recovered/Resolved]
  - Mouth swelling [Recovering/Resolving]
  - Skin plaque [Not Recovered/Not Resolved]
  - Urticaria [Recovered/Resolved]
  - Oropharyngeal discomfort [Not Recovered/Not Resolved]
  - Immunodeficiency [Unknown]
  - Product dose omission issue [Unknown]
  - Blood pressure decreased [Recovered/Resolved]
  - Nervousness [Not Recovered/Not Resolved]
  - Urticaria [Recovered/Resolved]
  - Hypersensitivity [Unknown]
  - Injury [Unknown]
  - Fear [Recovered/Resolved]
  - Crying [Not Recovered/Not Resolved]
  - Hypersensitivity [Recovered/Resolved]
  - Scratch [Unknown]
  - Injection site pain [Unknown]
  - Skin plaque [Unknown]
  - Intentional product misuse [Unknown]

NARRATIVE: CASE EVENT DATE: 2019
